FAERS Safety Report 5713610-6 (Version None)
Quarter: 2008Q2

REPORT INFORMATION
  Report Type: 
  Country: None (occurrence: None)
  Receive Date: 20080418
  Receipt Date: 20080409
  Transmission Date: 20081010
  Serious: Yes (Hospitalization)
  Sender: FDA-Public Use
  Company Number: 2008SP006190

PATIENT
  Age: 59 Year
  Sex: Female

DRUGS (2)
  1. DIPROPHOS    (BETAMETHASONE SODIUM PHOSPHATE/DIPROPIONATE) [Suspect]
     Indication: DRUG USE FOR UNKNOWN INDICATION
     Dosage: IA
     Route: 014
     Dates: start: 20080321, end: 20080321
  2. BELSAR [Concomitant]

REACTIONS (5)
  - BLOOD INSULIN INCREASED [None]
  - HEADACHE [None]
  - HYPOGLYCAEMIA [None]
  - ROAD TRAFFIC ACCIDENT [None]
  - URINE KETONE BODY PRESENT [None]
